FAERS Safety Report 13464661 (Version 1)
Quarter: 2017Q2

REPORT INFORMATION
  Report Type: Spontaneous
  Country: US (occurrence: US)
  Receive Date: 20170420
  Receipt Date: 20170420
  Transmission Date: 20170830
  Serious: Yes (Hospitalization, Other)
  Sender: FDA-Public Use
  Company Number: US-ROCHE-722283

PATIENT
  Age: 30 Year
  Sex: Male
  Weight: 74.8 kg

DRUGS (2)
  1. ACCUTANE [Suspect]
     Active Substance: ISOTRETINOIN
     Indication: ACNE CYSTIC
     Route: 065
     Dates: start: 198311, end: 198402
  2. ACCUTANE [Suspect]
     Active Substance: ISOTRETINOIN
     Route: 065
     Dates: start: 198408, end: 198411

REACTIONS (4)
  - Gastrointestinal injury [Unknown]
  - Oral herpes [Unknown]
  - Colitis ulcerative [Unknown]
  - Depression [Unknown]

NARRATIVE: CASE EVENT DATE: 198504
